FAERS Safety Report 17863865 (Version 3)
Quarter: 2020Q3

REPORT INFORMATION
  Report Type: Other
  Country: IT (occurrence: IT)
  Receive Date: 20200605
  Receipt Date: 20200903
  Transmission Date: 20201103
  Serious: Yes (Death, Hospitalization)
  Sender: FDA-Public Use
  Company Number: IT-ROCHE-2609084

PATIENT
  Age: 66 Year
  Sex: Female
  Weight: 57 kg

DRUGS (17)
  1. VINORELBINE [Suspect]
     Active Substance: VINORELBINE TARTRATE
     Indication: BREAST CANCER
     Dosage: OTHER
     Route: 042
     Dates: start: 20190327, end: 20190620
  2. GRANISETRON [Concomitant]
     Active Substance: GRANISETRON
     Dosage: ONGOING = NOT CHECKED
     Dates: start: 20170727, end: 20200220
  3. DOCETAXEL. [Suspect]
     Active Substance: DOCETAXEL
     Indication: BREAST CANCER
     Route: 042
     Dates: start: 20170727
  4. KARVEZIDE [Concomitant]
     Active Substance: HYDROCHLOROTHIAZIDE\IRBESARTAN
  5. METOCLOPRAMIDE. [Concomitant]
     Active Substance: METOCLOPRAMIDE
  6. TRASTUZUMAB. [Suspect]
     Active Substance: TRASTUZUMAB
     Indication: BREAST CANCER
     Dosage: MOST RECENT DOSE PRIOR TO EVENT 19/APR/2019
     Route: 041
  7. TRASTUZUMAB EMTANSINE [Suspect]
     Active Substance: ADO-TRASTUZUMAB EMTANSINE
     Indication: BREAST CANCER
     Dosage: MOST RECENT DOSE PRIOR TO THE EVENT: 24/AUG/2018
     Route: 042
     Dates: start: 20180706
  8. LAPATINIB [Suspect]
     Active Substance: LAPATINIB
     Indication: BREAST CANCER
     Route: 048
     Dates: start: 20181219, end: 20190326
  9. CONGESCOR [Concomitant]
     Active Substance: BISOPROLOL
     Dates: start: 20190704, end: 20200329
  10. GEMCITABINE. [Suspect]
     Active Substance: GEMCITABINE
     Indication: BREAST CANCER
     Dosage: OTHER
     Route: 042
     Dates: start: 20190627
  11. CLORFENAMINA [Concomitant]
     Active Substance: CHLORPHENIRAMINE MALEATE
  12. DENOSUMAB [Concomitant]
     Active Substance: DENOSUMAB
  13. RANITIDINE. [Concomitant]
     Active Substance: RANITIDINE
  14. PERTUZUMAB. [Suspect]
     Active Substance: PERTUZUMAB
     Indication: BREAST CANCER
     Dosage: MOST RECENT DOSE PRIOR TO EVENT 17/AUG/2017
     Route: 042
     Dates: start: 20170727
  15. LIBRADIN (ITALY) [Concomitant]
  16. CAPECITABINE. [Suspect]
     Active Substance: CAPECITABINE
     Indication: BREAST CANCER
     Route: 048
     Dates: start: 20181219, end: 20190326
  17. DESAMETASONE [Concomitant]
     Active Substance: DEXAMETHASONE

REACTIONS (1)
  - Condition aggravated [Fatal]

NARRATIVE: CASE EVENT DATE: 20200316
